FAERS Safety Report 18473047 (Version 2)
Quarter: 2020Q4

REPORT INFORMATION
  Report Type: Report from Study
  Country: HN (occurrence: HN)
  Receive Date: 20201106
  Receipt Date: 20201121
  Transmission Date: 20210114
  Serious: No
  Sender: FDA-Public Use
  Company Number: NVSC2020HN294631

PATIENT
  Sex: Female
  Weight: 77.1 kg

DRUGS (2)
  1. DIOVAN [Suspect]
     Active Substance: VALSARTAN
     Indication: BLOOD PRESSURE INCREASED
     Dosage: 160 MG
     Route: 065
     Dates: start: 20200225
  2. CODIOVAN [Suspect]
     Active Substance: HYDROCHLOROTHIAZIDE\VALSARTAN
     Indication: BLOOD PRESSURE INCREASED
     Dosage: 1 DF (STARTED APPROXIMAT 6 YEAR AGO)
     Route: 065
     Dates: end: 202002

REACTIONS (4)
  - Poor peripheral circulation [Unknown]
  - Productive cough [Unknown]
  - Varicose vein [Unknown]
  - Peripheral swelling [Unknown]
